FAERS Safety Report 17821532 (Version 1)
Quarter: 2020Q2

REPORT INFORMATION
  Report Type: Spontaneous
  Country: US (occurrence: US)
  Receive Date: 20200525
  Receipt Date: 20200525
  Transmission Date: 20200714
  Serious: Yes (Other)
  Sender: FDA-Public Use
  Company Number: US-SLATE RUN PHARMACEUTICALS-20US000130

PATIENT

DRUGS (5)
  1. AZITHROMYCIN USP [Suspect]
     Active Substance: AZITHROMYCIN
     Indication: PNEUMONIA
  2. HYDROXYCHLOROQUINE [Suspect]
     Active Substance: HYDROXYCHLOROQUINE
     Indication: PNEUMONIA
     Dosage: 400 MILLIGRAM, BID
     Route: 065
  3. AZITHROMYCIN USP [Suspect]
     Active Substance: AZITHROMYCIN
     Indication: COVID-19
     Route: 065
  4. PROPOFOL. [Concomitant]
     Active Substance: PROPOFOL
     Indication: PRODUCT USED FOR UNKNOWN INDICATION
     Route: 065
  5. HYDROXYCHLOROQUINE [Suspect]
     Active Substance: HYDROXYCHLOROQUINE
     Indication: COVID-19
     Dosage: 400 MILLIGRAM, QD
     Route: 065

REACTIONS (7)
  - Cardiomyopathy [Unknown]
  - Bradycardia [Unknown]
  - Electrocardiogram QT prolonged [Unknown]
  - Ventricular arrhythmia [Unknown]
  - Torsade de pointes [Unknown]
  - Hypothermia [Unknown]
  - Acute respiratory distress syndrome [Unknown]
